FAERS Safety Report 8917279 (Version 2)
Quarter: 2013Q1

REPORT INFORMATION
  Report Type: Report from Study
  Country: DE (occurrence: DE)
  Receive Date: 20121120
  Receipt Date: 20130212
  Transmission Date: 20140127
  Serious: Yes (Hospitalization)
  Sender: FDA-Public Use
  Company Number: DE-VERTEX PHARMACEUTICAL INC.-2012-024920

PATIENT
  Age: 54 Year
  Sex: Male

DRUGS (4)
  1. VX-950 (TELAPREVIR) [Suspect]
     Indication: HEPATITIS C
     Dosage: TABLET 2250 MG, QD
     Route: 048
     Dates: start: 20120914
  2. PEGASYS [Suspect]
     Indication: HEPATITIS C
     Dosage: 180 ?G, QW
     Route: 058
     Dates: start: 20120914
  3. COPEGUS [Suspect]
     Indication: HEPATITIS C
     Dosage: 1000 MG, UNK
     Route: 048
     Dates: start: 20120914
  4. COTRIM [Concomitant]
     Indication: BLOOD URIC ACID INCREASED
     Dosage: DOSAGE FORM: UNSPECIFIED
     Route: 048
     Dates: start: 20120925

REACTIONS (2)
  - Urinary tract infection [Recovered/Resolved]
  - Nausea [Recovered/Resolved]
